FAERS Safety Report 25277711 (Version 1)
Quarter: 2025Q2

REPORT INFORMATION
  Report Type: Spontaneous
  Country: US (occurrence: US)
  Receive Date: 20250507
  Receipt Date: 20250507
  Transmission Date: 20250716
  Serious: Yes (Hospitalization, Other)
  Sender: ADVANZ PHARMA
  Company Number: US-ADVANZ PHARMA-202504003233

PATIENT

DRUGS (5)
  1. ZONISAMIDE [Suspect]
     Active Substance: ZONISAMIDE
  2. BRIVIACT [Suspect]
     Active Substance: BRIVARACETAM
  3. BRIVIACT [Suspect]
     Active Substance: BRIVARACETAM
  4. LAMICTAL [Suspect]
     Active Substance: LAMOTRIGINE
  5. LAMICTAL [Suspect]
     Active Substance: LAMOTRIGINE

REACTIONS (4)
  - Seizure [Unknown]
  - Disturbance in attention [Unknown]
  - Lymphadenopathy [Unknown]
  - Brain fog [Unknown]

NARRATIVE: CASE EVENT DATE: 20250305
